FAERS Safety Report 10825266 (Version 1)
Quarter: 2015Q1

REPORT INFORMATION
  Report Type: Report from Study
  Country: US (occurrence: US)
  Receive Date: 20150219
  Receipt Date: 20150219
  Transmission Date: 20150721
  Serious: No
  Sender: FDA-Public Use
  Company Number: US-ABBVIE-14K-163-1318833-00

PATIENT
  Age: 23 Year
  Sex: Female

DRUGS (8)
  1. HUMIRA [Suspect]
     Active Substance: ADALIMUMAB
     Route: 065
     Dates: start: 2009, end: 2010
  2. HUMIRA [Suspect]
     Active Substance: ADALIMUMAB
     Route: 065
     Dates: start: 2010, end: 2010
  3. LIALDA [Concomitant]
     Active Substance: MESALAMINE
     Indication: PRODUCT USED FOR UNKNOWN INDICATION
  4. HUMIRA [Suspect]
     Active Substance: ADALIMUMAB
     Indication: COLITIS ULCERATIVE
     Dosage: DAY ONE
     Route: 065
     Dates: start: 200903, end: 200903
  5. HUMIRA [Suspect]
     Active Substance: ADALIMUMAB
     Route: 065
  6. HUMIRA [Suspect]
     Active Substance: ADALIMUMAB
     Dosage: DAY FIFTEEN
     Route: 065
     Dates: start: 2009
  7. HUMIRA [Suspect]
     Active Substance: ADALIMUMAB
     Route: 065
  8. HUMIRA [Suspect]
     Active Substance: ADALIMUMAB
     Indication: COLITIS ULCERATIVE
     Route: 065
     Dates: start: 2010

REACTIONS (5)
  - Crohn^s disease [Not Recovered/Not Resolved]
  - Acarodermatitis [Recovered/Resolved]
  - Haemorrhage [Not Recovered/Not Resolved]
  - Injection site pain [Unknown]
  - Acarodermatitis [Not Recovered/Not Resolved]

NARRATIVE: CASE EVENT DATE: 200903
